FAERS Safety Report 5272225-7 (Version None)
Quarter: 2007Q1

REPORT INFORMATION
  Report Type: 
  Country: None (occurrence: None)
  Receive Date: 20070322
  Receipt Date: 20070207
  Transmission Date: 20070707
  Serious: No
  Sender: FDA-Public Use
  Company Number: US-GLAXOSMITHKLINE-A0638764A

PATIENT
  Age: 79 Year
  Sex: Female

DRUGS (8)
  1. AVANDARYL [Suspect]
     Dosage: 1TAB TWICE PER DAY
     Route: 048
     Dates: start: 20070101
  2. CADUET [Concomitant]
  3. ASPIRIN [Concomitant]
  4. SYNTHROID [Concomitant]
  5. VITAMINS [Concomitant]
  6. AVAPRO [Concomitant]
  7. LEXAPRO [Concomitant]
  8. ZETIA [Concomitant]

REACTIONS (2)
  - PRURITUS [None]
  - RASH [None]
